FAERS Safety Report 25200939 (Version 1)
Quarter: 2025Q2

REPORT INFORMATION
  Report Type: Spontaneous
  Country: GB (occurrence: GB)
  Receive Date: 20250415
  Receipt Date: 20250415
  Transmission Date: 20250716
  Serious: Yes (Other)
  Sender: ABBVIE
  Company Number: None

PATIENT
  Age: 33 Year
  Sex: Male
  Weight: 60 kg

DRUGS (1)
  1. CITALOPRAM [Suspect]
     Active Substance: CITALOPRAM
     Indication: Mixed anxiety and depressive disorder
     Dosage: 20 MG ONCE A DAY IN MORNING
     Route: 065

REACTIONS (15)
  - Decreased appetite [Recovered/Resolved]
  - Libido decreased [Recovered/Resolved]
  - Palpitations [Recovered/Resolved]
  - Organic erectile dysfunction [Recovered/Resolved]
  - Diarrhoea [Recovered/Resolved]
  - Ejaculation disorder [Recovered/Resolved]
  - Muscle twitching [Recovered/Resolved]
  - Erectile dysfunction [Recovered/Resolved]
  - Dry mouth [Recovered/Resolved]
  - Insomnia [Recovered/Resolved]
  - Ejaculation disorder [Recovered/Resolved]
  - Hyperhidrosis [Recovered/Resolved]
  - Salivary hypersecretion [Recovered/Resolved]
  - Nausea [Recovered/Resolved]
  - Erectile dysfunction [Recovered/Resolved]
